FAERS Safety Report 16538819 (Version 2)
Quarter: 2019Q3

REPORT INFORMATION
  Report Type: Spontaneous
  Country: US (occurrence: US)
  Receive Date: 20190708
  Receipt Date: 20190715
  Transmission Date: 20191004
  Serious: Yes (Other)
  Sender: FDA-Public Use
  Company Number: US-CLINIGEN GROUP PLC/ CLINIGEN HEALTHCARE LTD-US-CLGN-19-00408

PATIENT

DRUGS (7)
  1. FOSCARNET SODIUM. [Suspect]
     Active Substance: FOSCARNET SODIUM
     Indication: CYTOMEGALOVIRUS VIRAEMIA
  2. CMV IVIG [Concomitant]
     Indication: CYTOMEGALOVIRUS VIRAEMIA
  3. CIDOFOVIR. [Suspect]
     Active Substance: CIDOFOVIR
     Indication: CYTOMEGALOVIRUS VIRAEMIA
  4. TACROLIMUS. [Concomitant]
     Active Substance: TACROLIMUS
     Indication: IMMUNOSUPPRESSANT DRUG THERAPY
  5. PREDNISONE. [Concomitant]
     Active Substance: PREDNISONE
     Indication: IMMUNOSUPPRESSANT DRUG THERAPY
  6. MYCOPHENOLATE MOFETIL. [Concomitant]
     Active Substance: MYCOPHENOLATE MOFETIL
     Indication: IMMUNOSUPPRESSANT DRUG THERAPY
  7. ANTY-THYMOGLOBULIN [Concomitant]
     Indication: IMMUNOSUPPRESSANT DRUG THERAPY

REACTIONS (5)
  - Nephropathy toxic [Unknown]
  - Transplant rejection [Unknown]
  - Graft loss [Unknown]
  - Drug resistance [Unknown]
  - Off label use [Unknown]
